FAERS Safety Report 8790602 (Version 1)
Quarter: 2012Q4

REPORT INFORMATION
  Report Type: Spontaneous
  Country: CA (occurrence: None)
  Receive Date: 20120905
  Receipt Date: 20120905
  Transmission Date: 20130627
  Serious: Yes (Disabling)
  Sender: FDA-Public Use
  Company Number: 1402447

PATIENT
  Age: 69 Year
  Sex: Female

DRUGS (20)
  1. VANCOMYCIN HYDROCHLORIDE [Suspect]
     Indication: PROSTHETIC VALVE ENDOCARDITIS
     Route: 041
  2. VANCOMYCIN HYDROCHLORIDE [Suspect]
     Indication: ENDOCARDITIS INFECTIVE
     Route: 041
  3. METHOTREXATE [Concomitant]
  4. ETANERCEPT [Concomitant]
  5. LEVOTHYROXINE [Concomitant]
  6. METOPROLOL [Concomitant]
  7. ROPINIROLE [Concomitant]
  8. ASPIRIN [Concomitant]
  9. SPIRONOLACTONE [Concomitant]
  10. PERINDOPRIL [Concomitant]
  11. FUROSEMIDE [Concomitant]
  12. LANSOPRAZOLE [Concomitant]
  13. PREDNISONE [Concomitant]
  14. ALBUTEROL [Concomitant]
  15. PIPERACILLIN/TAZOBACTAM STRAGEN [Concomitant]
  16. MOXIFLOXACIN [Concomitant]
  17. GENTAMICIN SULFATE [Concomitant]
  18. RIFAMPIN [Concomitant]
  19. CEFTRIAXONE SODIUM [Concomitant]
  20. ENOXAPARIN [Concomitant]

REACTIONS (6)
  - Renal impairment [None]
  - Tremor [None]
  - Infusion related reaction [None]
  - Activities of daily living impaired [None]
  - No therapeutic response [None]
  - Discomfort [None]
